FAERS Safety Report 9823582 (Version 2)
Quarter: 2014Q1

REPORT INFORMATION
  Report Type: Report from Study
  Country: KR (occurrence: KR)
  Receive Date: 20140116
  Receipt Date: 20140217
  Transmission Date: 20141002
  Serious: No
  Sender: FDA-Public Use
  Company Number: PHHY2014KR004952

PATIENT
  Age: 77 Year
  Sex: Female

DRUGS (16)
  1. AMN107 [Suspect]
     Indication: CHRONIC MYELOID LEUKAEMIA
     Dosage: 600 MG, PER DAY
     Route: 048
     Dates: start: 20131107
  2. RENOX [Concomitant]
     Indication: PERIODONTITIS
     Dosage: 180 MG, UNK
     Route: 048
     Dates: start: 20131216, end: 20131220
  3. VESICARE [Concomitant]
     Indication: NEUROGENIC BLADDER
     Dosage: 5 MG, UNK
     Route: 048
     Dates: start: 20131029, end: 20131216
  4. VESICARE [Concomitant]
     Dosage: 10 MG, UNK
     Route: 048
     Dates: start: 20131220
  5. AUGMENTIN [Concomitant]
     Indication: PERIODONTITIS
     Dosage: 1125 MG, UNK
     Route: 048
     Dates: start: 20131216, end: 20131220
  6. SOXINASE [Concomitant]
     Dosage: 3 TSP, UNK
     Route: 048
     Dates: start: 20131216, end: 20131220
  7. MAGNESIUM OXIDE [Concomitant]
     Indication: GASTROINTESTINAL DISORDER
     Dosage: 1000 MG, UNK
     Route: 048
     Dates: start: 20131111, end: 20131113
  8. MAGNESIUM OXIDE [Concomitant]
     Dosage: 1500 MG, UNK
     Route: 048
     Dates: start: 20131114, end: 20131211
  9. MAGNESIUM OXIDE [Concomitant]
     Dosage: 2250 MG, UNK
     Route: 048
     Dates: start: 20131213, end: 20131226
  10. CRAVIT [Concomitant]
     Indication: NEUROGENIC BLADDER
     Dosage: 500 MG, UNK
     Route: 048
     Dates: start: 20131119, end: 20131121
  11. GANATON [Concomitant]
     Indication: GASTROINTESTINAL DISORDER
     Dosage: 150 MG, UNK
     Route: 048
     Dates: start: 20131114, end: 20131211
  12. MEGESTROL ACETATE [Concomitant]
     Indication: WEIGHT DECREASED
     Dosage: 5.2 ML, UNK
     Route: 048
     Dates: start: 20131213
  13. DUPHALAC                                /NET/ [Concomitant]
     Indication: CONSTIPATION
     Dosage: 20 ML, UNK
     Route: 048
     Dates: start: 20131114
  14. CARBOXYMETHYLCELLULOSE SODIUM [Concomitant]
     Indication: CATARACT NUCLEAR
     Route: 047
     Dates: start: 20131226
  15. LIDOCAINE [Concomitant]
     Indication: PERIODONTITIS
     Dosage: 5.4 ML, UNK
     Dates: start: 20131230, end: 20131230
  16. PARIET [Concomitant]
     Indication: GASTROINTESTINAL DISORDER
     Dosage: 20 MG, UNK
     Route: 048
     Dates: start: 20131111, end: 20131226

REACTIONS (3)
  - Polydipsia [Not Recovered/Not Resolved]
  - Headache [Recovered/Resolved]
  - Palpitations [Recovered/Resolved]
